FAERS Safety Report 15870313 (Version 1)
Quarter: 2019Q1

REPORT INFORMATION
  Report Type: Spontaneous
  Country: NL (occurrence: NL)
  Receive Date: 20190125
  Receipt Date: 20190125
  Transmission Date: 20190417
  Serious: Yes (Hospitalization, Other)
  Sender: FDA-Public Use
  Company Number: NL-ALKEM LABORATORIES LIMITED-NL-ALKEM-2019-00575

PATIENT
  Age: 40 Year
  Sex: Female

DRUGS (2)
  1. OXALIPLATIN. [Concomitant]
     Active Substance: OXALIPLATIN
     Indication: ADENOCARCINOMA OF COLON
     Dosage: 130 MG/M2, ONCE EVERY 3 WEEKS
     Route: 065
  2. CAPECITABINE. [Suspect]
     Active Substance: CAPECITABINE
     Indication: ADENOCARCINOMA OF COLON
     Dosage: 1250 MG/M2, QD, FOR 2 WEEKS, IN A 3 WEEK CYCLE
     Route: 048

REACTIONS (1)
  - Pancreatitis acute [Recovered/Resolved]
